FAERS Safety Report 17176992 (Version 1)
Quarter: 2019Q4

REPORT INFORMATION
  Report Type: Spontaneous
  Country: US (occurrence: US)
  Receive Date: 20191219
  Receipt Date: 20191219
  Transmission Date: 20200122
  Serious: No
  Sender: FDA-Public Use
  Company Number: NVSC2019US017675

PATIENT
  Sex: Female

DRUGS (2)
  1. ZARXIO [Suspect]
     Active Substance: FILGRASTIM-SNDZ
     Indication: BREAST CANCER FEMALE
     Dosage: 300 UG (INJECT 300 MCG SUBCUTANEOUSLY DAILY FOR 5 DAYS POST CHEMO EVERY 3 WEEKS)
     Route: 058
     Dates: start: 201909
  2. CYCLOPHOSPHAMIDE. [Suspect]
     Active Substance: CYCLOPHOSPHAMIDE
     Indication: BREAST CANCER FEMALE
     Dosage: 400 MG (INFUSE 400 MG INTRAVENOUSLY EVERY 3 WEEKS)
     Route: 042
     Dates: start: 201909

REACTIONS (1)
  - Feeling abnormal [Unknown]
